FAERS Safety Report 5282282-X (Version None)
Quarter: 2007Q1

REPORT INFORMATION
  Report Type: 
  Country: None (occurrence: None)
  Receive Date: 20070331
  Receipt Date: 20070319
  Transmission Date: 20070707
  Serious: Yes (Other)
  Sender: FDA-Public Use
  Company Number: CA-PFIZER INC-2007023368

PATIENT
  Age: 59 Year
  Sex: Male

DRUGS (2)
  1. DILANTIN [Suspect]
     Indication: GRAND MAL CONVULSION
     Dosage: DAILY DOSE:400MG
     Route: 048
  2. LIPITOR [Concomitant]
     Route: 048

REACTIONS (9)
  - ABDOMINAL PAIN [None]
  - ARTHRALGIA [None]
  - CONSTIPATION [None]
  - CONVULSION [None]
  - DYSARTHRIA [None]
  - EYE ROLLING [None]
  - FRACTURE [None]
  - HAEMATOCHEZIA [None]
  - VOMITING [None]
